FAERS Safety Report 24833807 (Version 2)
Quarter: 2025Q3

REPORT INFORMATION
  Report Type: Report from Study
  Country: US (occurrence: US)
  Receive Date: 20250112
  Receipt Date: 20250810
  Transmission Date: 20251020
  Serious: Yes (Other)
  Sender: ALEXION PHARMACEUTICALS
  Company Number: US-AstraZeneca-CH-00780609A

PATIENT
  Sex: Male

DRUGS (1)
  1. OLAPARIB [Suspect]
     Active Substance: OLAPARIB
     Indication: Prostate cancer
     Dosage: 150 MILLIGRAM, QID
     Dates: start: 202407

REACTIONS (7)
  - Cardiac failure congestive [Unknown]
  - Blood potassium decreased [Unknown]
  - Anaemia [Unknown]
  - Peripheral swelling [Unknown]
  - Asthenia [Unknown]
  - Fall [Unknown]
  - Decubitus ulcer [Unknown]
